FAERS Safety Report 6947894-3 (Version None)
Quarter: 2010Q3

REPORT INFORMATION
  Report Type: 
  Country: None (occurrence: None)
  Receive Date: 20100828
  Receipt Date: 20091008
  Transmission Date: 20110219
  Serious: No
  Sender: FDA-Public Use
  Company Number: US-ABBOTT-09P-163-0601570-00

PATIENT
  Sex: Male
  Weight: 8.626 kg

DRUGS (4)
  1. NIASPAN [Suspect]
     Indication: HIGH DENSITY LIPOPROTEIN DECREASED
     Route: 048
  2. NIASPAN [Suspect]
     Indication: LOW DENSITY LIPOPROTEIN INCREASED
     Dosage: COATED
     Dates: start: 20070101
  3. NIASPAN [Suspect]
     Dosage: COATED
     Dates: start: 20070101
  4. ZETIA [Concomitant]
     Indication: LOW DENSITY LIPOPROTEIN INCREASED

REACTIONS (2)
  - DRUG INEFFECTIVE [None]
  - FLUSHING [None]
